FAERS Safety Report 6691854-7 (Version None)
Quarter: 2010Q2

REPORT INFORMATION
  Report Type: 
  Country: None (occurrence: None)
  Receive Date: 20100422
  Receipt Date: 20100414
  Transmission Date: 20101027
  Serious: Yes (Other)
  Sender: FDA-Public Use
  Company Number: PHHY2010CA23470

PATIENT
  Age: 44 Year
  Sex: Male

DRUGS (1)
  1. RITALIN-SR [Suspect]
     Dosage: UNK

REACTIONS (1)
  - WEIGHT INCREASED [None]
